FAERS Safety Report 9349917 (Version 1)
Quarter: 2013Q2

REPORT INFORMATION
  Report Type: Spontaneous
  Country: GB (occurrence: GB)
  Receive Date: 20130614
  Receipt Date: 20130614
  Transmission Date: 20140414
  Serious: Yes (Other)
  Sender: FDA-Public Use
  Company Number: PHHY2013GB058563

PATIENT
  Age: 78 Year
  Sex: Female

DRUGS (2)
  1. DOXYCYCLINE [Suspect]
     Indication: INFECTION
     Route: 048
     Dates: start: 201204
  2. RIFADIN [Suspect]
     Indication: INFECTION
     Route: 048
     Dates: start: 201204

REACTIONS (2)
  - Amnesia [Unknown]
  - Hypoacusis [Unknown]
